FAERS Safety Report 10258802 (Version 1)
Quarter: 2014Q2

REPORT INFORMATION
  Report Type: Spontaneous
  Country: IT (occurrence: IT)
  Receive Date: 20140625
  Receipt Date: 20140625
  Transmission Date: 20141212
  Serious: Yes (Hospitalization)
  Sender: FDA-Public Use
  Company Number: PHHY2014IT075719

PATIENT
  Age: 88 Year
  Sex: Female

DRUGS (5)
  1. TRAMADOL [Suspect]
     Indication: SPINAL PAIN
     Dosage: 50 MG, ONCE/SINGLE
     Route: 048
     Dates: start: 20140529, end: 20140529
  2. CARDICOR [Concomitant]
  3. PLAVIX [Concomitant]
  4. TOTALIP [Concomitant]
  5. TAREG [Concomitant]

REACTIONS (3)
  - Chest discomfort [Recovering/Resolving]
  - Nausea [Recovering/Resolving]
  - Vomiting [Recovering/Resolving]
